FAERS Safety Report 9856260 (Version 3)
Quarter: 2014Q2

REPORT INFORMATION
  Report Type: Spontaneous
  Country: US (occurrence: None)
  Receive Date: 20140129
  Receipt Date: 20140527
  Transmission Date: 20141212
  Serious: Yes (Death, Hospitalization)
  Sender: FDA-Public Use
  Company Number: 2014CT000005

PATIENT
  Age: 25 Year
  Sex: Female
  Weight: 185.98 kg

DRUGS (7)
  1. KORLYM [Suspect]
     Indication: HYPERCORTICOIDISM
     Route: 048
     Dates: start: 20131227, end: 20140110
  2. ASPIRIN [Concomitant]
  3. LASIX /00032601/ [Concomitant]
  4. DOCUSATE SODIUM [Concomitant]
  5. PRENATAL VITAMINS [Concomitant]
  6. POTASSIUM CHLORIDE [Concomitant]
  7. NITROZEN [Concomitant]

REACTIONS (28)
  - Paraesthesia [None]
  - Nausea [None]
  - Insomnia [None]
  - Panic attack [None]
  - Headache [None]
  - Pain [None]
  - Oedema peripheral [None]
  - Malaise [None]
  - Blood potassium decreased [None]
  - Aspartate aminotransferase increased [None]
  - Alanine aminotransferase increased [None]
  - Death [None]
  - Fluid imbalance [None]
  - Hyperhidrosis [None]
  - Intentional product misuse [None]
  - Snoring [None]
  - Alopecia [None]
  - Weight increased [None]
  - Skin lesion [None]
  - Loss of control of legs [None]
  - Acute stress disorder [None]
  - Malaise [None]
  - Insomnia [None]
  - Blood calcium increased [None]
  - Hepatic enzyme increased [None]
  - Respiratory arrest [None]
  - Peripheral coldness [None]
  - Aphagia [None]
